FAERS Safety Report 4969448-0 (Version None)
Quarter: 2006Q2

REPORT INFORMATION
  Report Type: 
  Country: None (occurrence: None)
  Receive Date: 20060406
  Receipt Date: 20060328
  Transmission Date: 20061013
  Serious: Yes (Hospitalization)
  Sender: FDA-Public Use
  Company Number: TPA2005A01714

PATIENT
  Age: 59 Year
  Sex: Female
  Weight: 90.7194 kg

DRUGS (5)
  1. ACTOS (PIOGLITAZONE HYDROCHLORIDE) (30 MILLIGRAM, TABLETS) [Suspect]
     Indication: DIABETES MELLITUS
     Dosage: 30 MG, PER ORAL
     Route: 048
     Dates: start: 20041227, end: 20051222
  2. ALTACE (RAMIPRIL) (10 MILLIGRAM) [Concomitant]
  3. VYTORIN (SIMVASTATIN, EZETIMIBE) [Concomitant]
  4. TRICOR [Concomitant]
  5. PREVACID [Concomitant]

REACTIONS (5)
  - CHEST PAIN [None]
  - DYSPNOEA [None]
  - OEDEMA PERIPHERAL [None]
  - PITTING OEDEMA [None]
  - WEIGHT INCREASED [None]
